FAERS Safety Report 9169900 (Version 3)
Quarter: 2013Q2

REPORT INFORMATION
  Report Type: Spontaneous
  Country: US (occurrence: None)
  Receive Date: 20130307
  Receipt Date: 20130425
  Transmission Date: 20140414
  Serious: Yes (Hospitalization)
  Sender: FDA-Public Use
  Company Number: 2013SGN00091

PATIENT
  Age: 30 Year
  Sex: Female

DRUGS (5)
  1. BRENTUXIMAB VEDOTIN [Suspect]
     Indication: HODGKIN^S DISEASE
     Dosage: QCYCLE
     Route: 042
     Dates: start: 20121126
  2. IFOSFAMIDE [Suspect]
     Indication: HODGKIN^S DISEASE
     Dosage: QCYCLE
     Route: 042
     Dates: start: 20130208, end: 20130209
  3. CARBOPLATIN [Suspect]
     Indication: HODGKIN^S DISEASE
     Dosage: QCYCLE
     Route: 042
     Dates: start: 20130210, end: 20130210
  4. ETOPOSIDE [Suspect]
     Indication: HODGKIN^S DISEASE
     Dosage: QCYCLE
     Route: 042
     Dates: start: 20130208, end: 20130209
  5. MESNA [Suspect]
     Indication: PROPHYLAXIS
     Dosage: QCYCLE
     Route: 042
     Dates: start: 20130208, end: 20130209

REACTIONS (4)
  - Febrile neutropenia [None]
  - Stomatitis [None]
  - Oral pain [None]
  - Hypophagia [None]
